FAERS Safety Report 9720562 (Version 1)
Quarter: 2013Q4

REPORT INFORMATION
  Report Type: Spontaneous
  Country: PL (occurrence: PL)
  Receive Date: 20131129
  Receipt Date: 20131129
  Transmission Date: 20140711
  Serious: Yes (Other)
  Sender: FDA-Public Use
  Company Number: PL-SA-2013SA121869

PATIENT
  Age: 34 Year
  Sex: Female
  Weight: 53 kg

DRUGS (1)
  1. CEREZYME [Suspect]
     Indication: GAUCHER^S DISEASE
     Dosage: DOSE:15 UNIT(S)/KILOGRAM BODYWEIGHT
     Route: 042
     Dates: start: 200410, end: 20131114

REACTIONS (3)
  - Convulsion [Recovered/Resolved]
  - Chills [Recovered/Resolved]
  - Nasopharyngitis [Unknown]
